FAERS Safety Report 20670960 (Version 1)
Quarter: 2022Q2

REPORT INFORMATION
  Report Type: Spontaneous
  Country: JP (occurrence: JP)
  Receive Date: 20220404
  Receipt Date: 20220404
  Transmission Date: 20220720
  Serious: Yes (Death)
  Sender: FDA-Public Use
  Company Number: JP-ELI_LILLY_AND_COMPANY-JP202204000586

PATIENT
  Age: 60 Year
  Sex: Female
  Weight: 63 kg

DRUGS (5)
  1. ADCIRCA [Suspect]
     Active Substance: TADALAFIL
     Indication: Pulmonary arterial hypertension
     Dosage: 20 MG, DAILY
     Route: 065
     Dates: end: 20171219
  2. UPTRAVI [Suspect]
     Active Substance: SELEXIPAG
     Indication: Pulmonary arterial hypertension
     Dosage: 0.4 MG, DAILY
     Route: 048
     Dates: start: 20171215, end: 20171219
  3. OPSUMIT [Concomitant]
     Active Substance: MACITENTAN
     Indication: Pulmonary arterial hypertension
     Dosage: 10 MG, UNKNOWN
     Route: 065
     Dates: end: 20171219
  4. SAMSCA [Concomitant]
     Active Substance: TOLVAPTAN
     Indication: Product used for unknown indication
     Dosage: 15 MG, UNKNOWN
     Route: 065
     Dates: end: 20171219
  5. SPIRONOLACTONE [Concomitant]
     Active Substance: SPIRONOLACTONE
     Indication: Product used for unknown indication
     Dosage: 25 MG, UNKNOWN
     Route: 065
     Dates: end: 20171219

REACTIONS (3)
  - Hepatic function abnormal [Fatal]
  - Pulmonary arterial hypertension [Fatal]
  - Renal impairment [Fatal]

NARRATIVE: CASE EVENT DATE: 20171219
